FAERS Safety Report 7125789-2 (Version None)
Quarter: 2010Q4

REPORT INFORMATION
  Report Type: 
  Country: None (occurrence: None)
  Receive Date: 20101129
  Receipt Date: 20101125
  Transmission Date: 20110411
  Serious: Yes (Hospitalization)
  Sender: FDA-Public Use
  Company Number: B0686070A

PATIENT
  Age: 2 Month
  Sex: Male
  Weight: 4.9 kg

DRUGS (6)
  1. AUGMENTIN [Suspect]
     Indication: BRONCHIOLITIS
     Route: 048
     Dates: start: 20100403, end: 20100408
  2. PARACETAMOL [Concomitant]
     Route: 065
     Dates: start: 20100330
  3. ZYMA-D2 [Concomitant]
     Route: 065
     Dates: start: 20100330
  4. SALBUTAMOL [Concomitant]
     Route: 055
     Dates: start: 20100331
  5. LACTEOL [Concomitant]
     Route: 048
     Dates: start: 20100405, end: 20100408
  6. DEBRIDAT [Concomitant]
     Route: 065

REACTIONS (4)
  - CHOLELITHIASIS [None]
  - CHOLESTASIS [None]
  - FAECES DISCOLOURED [None]
  - PAIN [None]
